FAERS Safety Report 5729172-3 (Version None)
Quarter: 2008Q2

REPORT INFORMATION
  Report Type: 
  Country: None (occurrence: None)
  Receive Date: 20080506
  Receipt Date: 20080505
  Transmission Date: 20081010
  Serious: Yes (Other)
  Sender: FDA-Public Use
  Company Number: FR-BRISTOL-MYERS SQUIBB COMPANY-14175301

PATIENT
  Age: 67 Year
  Sex: Male

DRUGS (3)
  1. ACETYLCYSTEINE [Suspect]
  2. XALACOM [Suspect]
  3. TIMABAK [Suspect]

REACTIONS (2)
  - CONJUNCTIVITIS ALLERGIC [None]
  - DERMATITIS CONTACT [None]
